FAERS Safety Report 8127802-2 (Version None)
Quarter: 2012Q1

REPORT INFORMATION
  Report Type: 
  Country: None (occurrence: None)
  Receive Date: 20120210
  Receipt Date: 20120201
  Transmission Date: 20120608
  Serious: Yes (Other)
  Sender: FDA-Public Use
  Company Number: US-AMGEN-US348115

PATIENT
  Age: 13 Year
  Sex: Female
  Weight: 59.5 kg

DRUGS (4)
  1. ETANERCEPT [Suspect]
     Indication: JUVENILE ARTHRITIS
     Dosage: 25 MG, 2 TIMES/WK
     Route: 058
     Dates: start: 20090220, end: 20090306
  2. METHOTREXATE [Concomitant]
     Dosage: 15 MG, QWK
     Route: 058
     Dates: start: 20080801
  3. ETANERCEPT [Suspect]
     Indication: PSORIATIC ARTHROPATHY
  4. MELOXICAM [Concomitant]
     Dosage: 15 MG, QD
     Route: 048
     Dates: start: 20080601

REACTIONS (3)
  - ATAXIA [None]
  - VISUAL IMPAIRMENT [None]
  - SYNCOPE [None]
